FAERS Safety Report 4867024-1 (Version None)
Quarter: 2005Q4

REPORT INFORMATION
  Report Type: 
  Country: None (occurrence: None)
  Receive Date: 20051222
  Receipt Date: 20051209
  Transmission Date: 20060501
  Serious: Yes (Death)
  Sender: FDA-Public Use
  Company Number: CN-2005-026278

PATIENT
  Age: 78 Year
  Sex: Male
  Weight: 65 kg

DRUGS (1)
  1. ULTRAVIST 370 [Suspect]
     Indication: CORONARY ANGIOPLASTY
     Dosage: 250 ML, 1 DOSE, INTRACORONARY
     Route: 022
     Dates: start: 20051129, end: 20051129

REACTIONS (3)
  - CARDIAC PROCEDURE COMPLICATION [None]
  - CARDIO-RESPIRATORY ARREST [None]
  - CHILLS [None]
